FAERS Safety Report 12147345 (Version 1)
Quarter: 2016Q1

REPORT INFORMATION
  Report Type: Spontaneous
  Country: PT (occurrence: PT)
  Receive Date: 20160304
  Receipt Date: 20160304
  Transmission Date: 20160526
  Serious: Yes (Life-Threatening, Hospitalization, Other)
  Sender: FDA-Public Use
  Company Number: PT-BAYER-2016-034410

PATIENT
  Age: 29 Year
  Sex: Female
  Weight: 58 kg

DRUGS (2)
  1. DESOGESTREL [Suspect]
     Active Substance: DESOGESTREL
     Indication: CONTRACEPTION
     Route: 048
  2. JAYDESS [Suspect]
     Active Substance: LEVONORGESTREL
     Indication: CONTRACEPTION
     Dosage: 6 MCG/24HR, CONT (AVERAGE DAILY DOSE RELEASED DURING 3 YEARS)
     Route: 015
     Dates: start: 20150909, end: 20160123

REACTIONS (5)
  - Ectopic pregnancy with contraceptive device [Recovered/Resolved with Sequelae]
  - Anaemia [Recovered/Resolved with Sequelae]
  - Amenorrhoea [Unknown]
  - Peritoneal haemorrhage [Recovered/Resolved with Sequelae]
  - Haemodynamic instability [Recovered/Resolved with Sequelae]

NARRATIVE: CASE EVENT DATE: 20160123
